FAERS Safety Report 24122630 (Version 1)
Quarter: 2024Q3

REPORT INFORMATION
  Report Type: Other
  Country: CA (occurrence: CA)
  Receive Date: 20240723
  Receipt Date: 20240723
  Transmission Date: 20241017
  Serious: Yes (Other)
  Sender: APOTEX
  Company Number: CA-APOTEX-2024AP008313

PATIENT
  Age: 38 Year
  Sex: Male
  Weight: 78.005 kg

DRUGS (1)
  1. LEVOFLOXACIN [Suspect]
     Active Substance: LEVOFLOXACIN
     Indication: Pneumonia
     Dosage: 250 MILLIGRAM, TID
     Route: 048

REACTIONS (5)
  - Hypoaesthesia [Not Recovered/Not Resolved]
  - Feeling cold [Not Recovered/Not Resolved]
  - Skin discolouration [Not Recovered/Not Resolved]
  - Paraesthesia [Not Recovered/Not Resolved]
  - Tendonitis [Not Recovered/Not Resolved]
